FAERS Safety Report 8620467-2 (Version None)
Quarter: 2012Q3

REPORT INFORMATION
  Report Type: 
  Country: None (occurrence: None)
  Receive Date: 20120824
  Receipt Date: 20120709
  Transmission Date: 20120928
  Serious: Yes (Hospitalization)
  Sender: FDA-Public Use
  Company Number: DE-AMGEN-DEUSP2012015651

PATIENT
  Sex: Male

DRUGS (16)
  1. MST                                /00036302/ [Concomitant]
     Indication: PAIN
     Dosage: 30 MG, BID
     Route: 048
     Dates: start: 20120416
  2. NOVALGIN                           /00169801/ [Concomitant]
     Indication: PAIN
     Dosage: 500 MG, QID
     Route: 048
  3. RULID [Concomitant]
     Dosage: 300 MG, UNK
     Route: 048
     Dates: start: 20120201, end: 20120214
  4. NEULASTA [Suspect]
     Indication: B-CELL LYMPHOMA
     Dosage: 6 MG, UNK
     Route: 058
     Dates: start: 20120206, end: 20120420
  5. RITUXIMAB [Suspect]
     Indication: B-CELL LYMPHOMA
     Dosage: 750 MG, UNK
     Route: 042
     Dates: start: 20120201, end: 20120416
  6. PANTOPRAZOLE [Concomitant]
     Dosage: 40 MG, UNK
     Route: 048
     Dates: start: 20120103
  7. PASPERTIN                          /00041902/ [Concomitant]
     Dosage: UNK UNK, TID
     Route: 048
  8. ACYCLOVIR [Concomitant]
     Dosage: 400 MG, UNK
     Route: 048
     Dates: start: 20120210
  9. ELECTROLYTES NOS W/MACROGOL 3350 [Concomitant]
     Dosage: UNK
     Route: 048
     Dates: start: 20120131, end: 20120203
  10. CYCLOPHOSPHAMIDE [Suspect]
     Indication: B-CELL LYMPHOMA
     Dosage: 1500 MG, UNK
     Route: 042
     Dates: start: 20120202, end: 20120417
  11. DOXORUBICIN HYDROCHLORIDE [Suspect]
     Indication: B-CELL LYMPHOMA
     Dosage: 100 MG, UNK
     Route: 042
     Dates: start: 20120202, end: 20120417
  12. DIPYRONE INJ [Concomitant]
     Indication: PAIN
     Dosage: 500 MG, QID
     Route: 048
  13. METOCLOPRAMIDE [Concomitant]
     Indication: VOMITING
     Dosage: 20 GTT, UNK
     Route: 048
  14. ACYCLOVIR [Concomitant]
     Dosage: 400 MG, UNK
     Route: 048
  15. VINCRISTINE [Suspect]
     Indication: B-CELL LYMPHOMA
     Dosage: 2 MG, UNK
     Route: 042
     Dates: start: 20120202, end: 20120417
  16. PREDNISOLONE [Suspect]
     Indication: B-CELL LYMPHOMA
     Dosage: 100 MG, UNK
     Route: 048
     Dates: start: 20120202, end: 20120421

REACTIONS (4)
  - FEBRILE NEUTROPENIA [None]
  - SKIN INFECTION [None]
  - NEUTROPENIA [None]
  - PNEUMONITIS [None]
